FAERS Safety Report 5132755-5 (Version None)
Quarter: 2006Q4

REPORT INFORMATION
  Report Type: 
  Country: None (occurrence: None)
  Receive Date: 20061023
  Receipt Date: 20060929
  Transmission Date: 20070319
  Serious: Yes (Hospitalization, Other)
  Sender: FDA-Public Use
  Company Number: GB-BRISTOL-MYERS SQUIBB COMPANY-13525548

PATIENT
  Age: 24 Year
  Sex: Female
  Weight: 48 kg

DRUGS (2)
  1. SUSTIVA [Suspect]
     Indication: HIV INFECTION
     Dosage: DOSE REDUCED TO 400 MG ONCE DAILY ON 02-OCT-2006
     Route: 048
     Dates: start: 20060427
  2. KIVEXA [Concomitant]
     Indication: HIV INFECTION
     Dosage: ABACAVIR 600 MG + LAMIVUDINE 300 MG
     Route: 048
     Dates: start: 20060719

REACTIONS (3)
  - LOWER RESPIRATORY TRACT INFECTION [None]
  - PSYCHOTIC DISORDER [None]
  - RENAL IMPAIRMENT [None]
